FAERS Safety Report 5163689-8 (Version None)
Quarter: 2006Q4

REPORT INFORMATION
  Report Type: 
  Country: None (occurrence: None)
  Receive Date: 20061204
  Receipt Date: 20010314
  Transmission Date: 20070319
  Serious: Yes (Hospitalization)
  Sender: FDA-Public Use
  Company Number: FR-GLAXOSMITHKLINE-B0101594A

PATIENT
  Sex: Female
  Weight: 3 kg

DRUGS (7)
  1. LAMIVUDINE [Suspect]
     Indication: ANTIVIRAL PROPHYLAXIS
     Route: 048
     Dates: start: 19970916, end: 19971001
  2. ZIDOVUDINE [Suspect]
     Indication: ANTIVIRAL PROPHYLAXIS
     Route: 048
     Dates: start: 19970916, end: 19971001
  3. EPIVIR [Suspect]
     Indication: HUMAN IMMUNODEFICIENCY VIRUS TRANSMISSION
     Route: 048
  4. RETROVIR [Suspect]
     Indication: HUMAN IMMUNODEFICIENCY VIRUS TRANSMISSION
     Route: 048
  5. CELESTONE [Concomitant]
  6. ECONAZOLE NITRATE [Concomitant]
  7. CETIRIZINE HCL [Concomitant]

REACTIONS (7)
  - ALANINE AMINOTRANSFERASE INCREASED [None]
  - ANAEMIA [None]
  - ANAEMIA NEONATAL [None]
  - ASPARTATE AMINOTRANSFERASE INCREASED [None]
  - NEUTROPENIA [None]
  - NEUTROPENIA NEONATAL [None]
  - STRABISMUS [None]
